FAERS Safety Report 10248464 (Version 1)
Quarter: 2014Q2

REPORT INFORMATION
  Report Type: Spontaneous
  Country: US (occurrence: US)
  Receive Date: 20140620
  Receipt Date: 20140620
  Transmission Date: 20141212
  Serious: Yes (Hospitalization)
  Sender: FDA-Public Use
  Company Number: US-BRISTOL-MYERS SQUIBB COMPANY-20986063

PATIENT
  Sex: Male

DRUGS (1)
  1. BYDUREON [Suspect]
     Dosage: INJECTION
     Route: 058

REACTIONS (5)
  - Toxicity to various agents [Unknown]
  - Weight decreased [Unknown]
  - Nausea [Unknown]
  - Retching [Unknown]
  - Decreased appetite [Unknown]
